FAERS Safety Report 10862844 (Version 2)
Quarter: 2015Q1

REPORT INFORMATION
  Report Type: Report from Study
  Country: US (occurrence: US)
  Receive Date: 20150223
  Receipt Date: 20150324
  Transmission Date: 20150721
  Serious: Yes (Death)
  Sender: FDA-Public Use
  Company Number: US-SANOFI-AVENTIS-2013SA085565

PATIENT
  Age: 66 Year
  Sex: Female
  Weight: 52 kg

DRUGS (8)
  1. AMITIZA [Concomitant]
     Active Substance: LUBIPROSTONE
     Dosage: DAILY DOSE 2X2?1 COLON NOW TAKE DIPHENOL UNLESS CONSTIPATED
  2. DIPHENOXYLATE [Concomitant]
     Active Substance: DIPHENOXYLATE
  3. TOVIAZ [Concomitant]
     Active Substance: FESOTERODINE FUMARATE
  4. ATROPINE [Concomitant]
     Active Substance: ATROPINE
  5. LISINOPRIL. [Concomitant]
     Active Substance: LISINOPRIL
  6. AUBAGIO [Suspect]
     Active Substance: TERIFLUNOMIDE
     Indication: MULTIPLE SCLEROSIS
     Route: 048
     Dates: start: 20131126
  7. VITAMIN D [Concomitant]
     Active Substance: CHOLECALCIFEROL
  8. AUBAGIO [Suspect]
     Active Substance: TERIFLUNOMIDE
     Indication: MULTIPLE SCLEROSIS
     Route: 048
     Dates: start: 20130514, end: 20131101

REACTIONS (18)
  - Anorectal disorder [Unknown]
  - Death [Fatal]
  - Tooth avulsion [Unknown]
  - Faecal incontinence [Unknown]
  - Vein disorder [Unknown]
  - Incontinence [Unknown]
  - Frostbite [Unknown]
  - Gingival disorder [Unknown]
  - Alopecia [Unknown]
  - Hypoaesthesia [Unknown]
  - Vitamin D increased [Unknown]
  - Dry mouth [Unknown]
  - Diarrhoea [Unknown]
  - Blood calcium increased [Unknown]
  - Hypersensitivity [Unknown]
  - Restless legs syndrome [Unknown]
  - Walking aid user [Unknown]
  - Multiple sclerosis relapse [Not Recovered/Not Resolved]

NARRATIVE: CASE EVENT DATE: 20141212
